FAERS Safety Report 9800163 (Version 3)
Quarter: 2014Q1

REPORT INFORMATION
  Report Type: Spontaneous
  Country: US (occurrence: US)
  Receive Date: 20140106
  Receipt Date: 20140122
  Transmission Date: 20141002
  Serious: Yes (Death, Life-Threatening, Hospitalization)
  Sender: FDA-Public Use
  Company Number: US-B.I. PHARMACEUTICALS,INC./RIDGEFIELD-2014-BI-00317BP

PATIENT
  Age: 76 Year
  Sex: Female

DRUGS (4)
  1. SPIRIVA [Suspect]
     Indication: CHRONIC OBSTRUCTIVE PULMONARY DISEASE
     Route: 055
     Dates: start: 2009
  2. GABAPENTIN (NEURONTIN) [Concomitant]
  3. UNSPECIFIED HANDIHALER [Concomitant]
  4. HIGH BLOOD PRESSURE MEDICATIONS [Concomitant]

REACTIONS (3)
  - Aortic embolus [Fatal]
  - Haematemesis [Unknown]
  - Medication error [Unknown]
